FAERS Safety Report 7331166-1 (Version None)
Quarter: 2011Q1

REPORT INFORMATION
  Report Type: 
  Country: None (occurrence: None)
  Receive Date: 20110304
  Receipt Date: 20110222
  Transmission Date: 20110831
  Serious: Yes (Disabling)
  Sender: FDA-Public Use
  Company Number: SE-BRISTOL-MYERS SQUIBB COMPANY-15356751

PATIENT
  Age: 4 Year
  Sex: Male
  Weight: 17 kg

DRUGS (7)
  1. DOXORUBICIN [Suspect]
     Indication: ADRENOCORTICAL CARCINOMA
  2. LEVOFLOXACIN [Concomitant]
  3. HYDROCORTISONE [Concomitant]
  4. FLORINEF [Concomitant]
  5. ETOPOSIDE [Suspect]
     Indication: ADRENOCORTICAL CARCINOMA
  6. CISPLATIN [Suspect]
     Indication: ADRENOCORTICAL CARCINOMA
  7. LYSODREN [Suspect]
     Indication: ADRENOCORTICAL CARCINOMA
     Dosage: 20TO27-OCT-2010:3G/DAY,STOPPED ON 27OCT2010;REINTRODUCED ON 20NOV2010(2.25 DOSAGE FORMS/DAY)-ONG
     Dates: start: 20100101

REACTIONS (8)
  - STRABISMUS [None]
  - WALKING DISABILITY [None]
  - NAUSEA [None]
  - WEIGHT DECREASED [None]
  - TREMOR [None]
  - VOMITING [None]
  - ATAXIA [None]
  - INTENTION TREMOR [None]
